FAERS Safety Report 8165480-7 (Version None)
Quarter: 2012Q1

REPORT INFORMATION
  Report Type: 
  Country: None (occurrence: None)
  Receive Date: 20120227
  Receipt Date: 20111007
  Transmission Date: 20120608
  Serious: No
  Sender: FDA-Public Use
  Company Number: US-MYLANLABS-2011S1021136

PATIENT
  Age: 68 Year
  Sex: Female
  Weight: 76.66 kg

DRUGS (4)
  1. METOPROLOL SUCCINATE [Suspect]
     Indication: BLOOD PRESSURE INCREASED
     Route: 048
     Dates: start: 20110903, end: 20110926
  2. METOPROLOL TARTRATE [Suspect]
     Indication: BLOOD PRESSURE INCREASED
     Route: 048
     Dates: end: 20110902
  3. LOSARTAN POTASSIUM [Concomitant]
     Dates: start: 20110919
  4. ZESTRIL [Concomitant]
     Dates: start: 20110101, end: 20110918

REACTIONS (11)
  - PHARYNGEAL OEDEMA [None]
  - DYSPNOEA [None]
  - ALOPECIA [None]
  - PRURITUS GENERALISED [None]
  - EYELID OEDEMA [None]
  - SWELLING FACE [None]
  - OEDEMA MOUTH [None]
  - DIZZINESS [None]
  - LIP SWELLING [None]
  - RASH [None]
  - HYPERHIDROSIS [None]
